FAERS Safety Report 4708691-2 (Version None)
Quarter: 2005Q3

REPORT INFORMATION
  Report Type: 
  Country: None (occurrence: None)
  Receive Date: 20050705
  Receipt Date: 20050624
  Transmission Date: 20060218
  Serious: Yes (Death)
  Sender: FDA-Public Use
  Company Number: 106944ISR

PATIENT
  Age: 60 Year
  Sex: Male

DRUGS (1)
  1. GLATIRAMER ACETATE [Suspect]
     Indication: MULTIPLE SCLEROSIS
     Dosage: 20 MILLIGRAM  SUBCUTANEOUS
     Route: 058
     Dates: start: 20020916, end: 20050301

REACTIONS (1)
  - ADENOCARCINOMA PANCREAS [None]
